FAERS Safety Report 25750656 (Version 1)
Quarter: 2025Q3

REPORT INFORMATION
  Report Type: Spontaneous
  Country: US (occurrence: None)
  Receive Date: 20250829
  Receipt Date: 20250829
  Transmission Date: 20251021
  Serious: Yes (Hospitalization, Disabling, Other)
  Sender: FDA-CTU
  Company Number: None

PATIENT
  Age: 63 Year
  Sex: Female
  Weight: 108.86 kg

DRUGS (1)
  1. SYSTANE LUBRICANT [Suspect]
     Active Substance: POLYETHYLENE GLYCOL 400\PROPYLENE GLYCOL
     Indication: Dry eye
     Route: 031
     Dates: start: 201203, end: 20241224

REACTIONS (13)
  - Keratitis fungal [None]
  - Corneal deposits [None]
  - Hypopyon [None]
  - Corneal transplant [None]
  - Corneal graft rejection [None]
  - Glaucoma [None]
  - Palpitations [None]
  - Hypoaesthesia [None]
  - Oedema peripheral [None]
  - Recalled product administered [None]
  - Ulcerative keratitis [None]
  - Device failure [None]
  - Product contamination microbial [None]

NARRATIVE: CASE EVENT DATE: 20240723
